FAERS Safety Report 10879629 (Version 1)
Quarter: 2015Q1

REPORT INFORMATION
  Report Type: Spontaneous
  Country: SE (occurrence: SE)
  Receive Date: 20150302
  Receipt Date: 20150302
  Transmission Date: 20150721
  Serious: Yes (Hospitalization)
  Sender: FDA-Public Use
  Company Number: SE-PFIZER INC-2015071886

PATIENT
  Age: 88 Year
  Sex: Male

DRUGS (7)
  1. METOPROLOL [Concomitant]
     Active Substance: METOPROLOL
     Dosage: UNK
  2. ENALAPRIL [Concomitant]
     Active Substance: ENALAPRIL
     Dosage: UNK
  3. TROMBYL [Concomitant]
     Active Substance: ASPIRIN
     Dosage: UNK
  4. BEHEPAN [Concomitant]
     Active Substance: HYDROXOCOBALAMIN
     Dosage: UNK
  5. FURIX [Concomitant]
     Active Substance: FUROSEMIDE
     Dosage: UNK
  6. TOVIAZ [Suspect]
     Active Substance: FESOTERODINE FUMARATE
     Indication: MICTURITION URGENCY
     Dosage: 8 MG, 1X/DAY
     Route: 048
     Dates: start: 2013, end: 20141127
  7. METFORMIN [Concomitant]
     Active Substance: METFORMIN HYDROCHLORIDE
     Dosage: UNK

REACTIONS (2)
  - Acute kidney injury [Recovered/Resolved]
  - Urinary retention [Recovered/Resolved]

NARRATIVE: CASE EVENT DATE: 20141127
